FAERS Safety Report 9850080 (Version 2)
Quarter: 2014Q1

REPORT INFORMATION
  Report Type: Report from Study
  Country: AR (occurrence: AR)
  Receive Date: 20140128
  Receipt Date: 20140220
  Transmission Date: 20141002
  Serious: Yes (Death, Hospitalization, Other)
  Sender: FDA-Public Use
  Company Number: PHHY2014AR009805

PATIENT
  Sex: Male

DRUGS (1)
  1. DIOVAN [Suspect]
     Dosage: UNK (160 MG), UNK
     Route: 048

REACTIONS (4)
  - Death [Fatal]
  - Toxicity to various agents [Unknown]
  - Lung disorder [Recovering/Resolving]
  - Condition aggravated [Unknown]
